FAERS Safety Report 11364206 (Version 1)
Quarter: 2015Q3

REPORT INFORMATION
  Report Type: Report from Study
  Country: BR (occurrence: BR)
  Receive Date: 20150811
  Receipt Date: 20150811
  Transmission Date: 20151125
  Serious: Yes (Other)
  Sender: FDA-Public Use
  Company Number: PHHY2015BR088438

PATIENT
  Sex: Female
  Weight: 70 kg

DRUGS (7)
  1. AFINITOR [Suspect]
     Active Substance: EVEROLIMUS
     Indication: PRODUCT USED FOR UNKNOWN INDICATION
     Dosage: 10 MG (1 TABLET), QD (DAILY)
     Route: 065
     Dates: start: 201410
  2. RIVOTRIL [Concomitant]
     Active Substance: CLONAZEPAM
     Indication: ANXIETY
     Dosage: 10 DRP, QD
     Route: 048
     Dates: start: 2014
  3. ZOMETA [Suspect]
     Active Substance: ZOLEDRONIC ACID
     Indication: METASTASES TO BONE
     Dosage: 1 DF (1 INJECTION), QMO (MONTHLY)
     Route: 042
  4. AROMAZIN [Concomitant]
     Indication: BREAST CANCER
     Dosage: 1 DF, QD
     Route: 048
     Dates: start: 201410
  5. ZOLADEX [Concomitant]
     Active Substance: GOSERELIN ACETATE
     Indication: HORMONE LEVEL ABNORMAL
     Dosage: 1 DF, Q3MO
     Route: 030
  6. AFINITOR [Suspect]
     Active Substance: EVEROLIMUS
     Dosage: 5 MG (1 TABLET) ONE DAY AND 7.5 MG (1 TABLET OF 5 MG AND 1 TABLET OF 2.5 MG) THE NEXT DAY
     Route: 048
     Dates: start: 201507
  7. VENLAFAXIN [Concomitant]
     Active Substance: VENLAFAXINE HYDROCHLORIDE
     Indication: ANXIETY
     Dosage: 1 DF, QD (A DAY)
     Route: 048
     Dates: start: 2014

REACTIONS (2)
  - Pneumonitis [Recovering/Resolving]
  - Oesophagitis [Recovering/Resolving]
